FAERS Safety Report 4305038-0 (Version None)
Quarter: 2004Q1

REPORT INFORMATION
  Report Type: 
  Country: None (occurrence: None)
  Receive Date: 20040223
  Receipt Date: 20030923
  Transmission Date: 20041129
  Serious: No
  Sender: FDA-Public Use
  Company Number: TAP2003Q02211

PATIENT
  Sex: Male

DRUGS (1)
  1. LUPRON DEPOT-4 [Suspect]
     Dosage: 30 MG, 1 IN 1 4 M,

REACTIONS (1)
  - INJECTION SITE ABSCESS STERILE [None]
